FAERS Safety Report 6428934-7 (Version None)
Quarter: 2009Q4

REPORT INFORMATION
  Report Type: 
  Country: None (occurrence: None)
  Receive Date: 20091104
  Receipt Date: 20091104
  Transmission Date: 20100525
  Serious: Yes (Hospitalization, Disabling, Other)
  Sender: FDA-Public Use
  Company Number: None

PATIENT
  Age: 47 Year
  Sex: Female
  Weight: 75 kg

DRUGS (1)
  1. TOPAMAX [Suspect]
     Indication: MIGRAINE
     Dosage: 25MG/50MG 2XDAY MOUTH
     Route: 048
     Dates: start: 20090919, end: 20090925

REACTIONS (6)
  - ANGLE CLOSURE GLAUCOMA [None]
  - BLINDNESS TRANSIENT [None]
  - CONDITION AGGRAVATED [None]
  - HYPERMETROPIA [None]
  - IMPAIRED DRIVING ABILITY [None]
  - MIGRAINE [None]
